FAERS Safety Report 11031885 (Version 1)
Quarter: 2015Q2

REPORT INFORMATION
  Report Type: Spontaneous
  Country: CN (occurrence: CN)
  Receive Date: 20150415
  Receipt Date: 20150415
  Transmission Date: 20150821
  Serious: Yes (Hospitalization, Other)
  Sender: FDA-Public Use
  Company Number: CN-GLAXOSMITHKLINE-CN2015GSK046712

PATIENT
  Age: 49 Year
  Sex: Male
  Weight: 89 kg

DRUGS (2)
  1. ADEFOVIR DIPIVOXIL. [Suspect]
     Active Substance: ADEFOVIR DIPIVOXIL
     Indication: HEPATITIS B
  2. HEPTODIN [Suspect]
     Active Substance: LAMIVUDINE
     Indication: HEPATITIS B
     Dosage: 1 DF, 1D
     Route: 048
     Dates: start: 201501

REACTIONS (6)
  - Jaundice [Not Recovered/Not Resolved]
  - Flatulence [Recovering/Resolving]
  - Perihepatic discomfort [Unknown]
  - Suspected counterfeit product [Unknown]
  - Intestinal obstruction [Not Recovered/Not Resolved]
  - Decreased appetite [Unknown]

NARRATIVE: CASE EVENT DATE: 2015
